FAERS Safety Report 6048516-9 (Version None)
Quarter: 2009Q1

REPORT INFORMATION
  Report Type: 
  Country: None (occurrence: None)
  Receive Date: 20090123
  Receipt Date: 20090120
  Transmission Date: 20090719
  Serious: Yes (Hospitalization)
  Sender: FDA-Public Use
  Company Number: B0555569A

PATIENT
  Age: 76 Year
  Sex: Female

DRUGS (2)
  1. AUGMENTIN '125' [Suspect]
     Route: 048
     Dates: start: 20070101
  2. NON STEROIDAL ANTI-INFLAMMATORY DRUGS [Concomitant]
     Route: 061
     Dates: start: 20070101

REACTIONS (4)
  - HEPATITIS CHOLESTATIC [None]
  - HYPERBILIRUBINAEMIA [None]
  - JAUNDICE [None]
  - PRURITUS GENERALISED [None]
